FAERS Safety Report 25525340 (Version 2)
Quarter: 2025Q3

REPORT INFORMATION
  Report Type: Spontaneous
  Country: JP (occurrence: JP)
  Receive Date: 20250707
  Receipt Date: 20250716
  Transmission Date: 20251021
  Serious: Yes (Other)
  Sender: FERRING
  Company Number: JP-ferring-EVA202500913FERRINGPH

PATIENT

DRUGS (1)
  1. DEGARELIX [Suspect]
     Active Substance: DEGARELIX
     Indication: Product used for unknown indication
     Route: 058

REACTIONS (1)
  - Hormone-refractory prostate cancer [Unknown]
